FAERS Safety Report 17929764 (Version 1)
Quarter: 2020Q2

REPORT INFORMATION
  Report Type: Spontaneous
  Country: US (occurrence: US)
  Receive Date: 20200623
  Receipt Date: 20200623
  Transmission Date: 20200714
  Serious: No
  Sender: FDA-Public Use
  Company Number: US-PFIZER INC-2020240256

PATIENT
  Age: 59 Year
  Sex: Female
  Weight: 73.94 kg

DRUGS (1)
  1. CELEBREX [Suspect]
     Active Substance: CELECOXIB
     Indication: OSTEOARTHRITIS
     Dosage: 200 MG, 1X/DAY
     Route: 048

REACTIONS (4)
  - Swollen tongue [Unknown]
  - Pruritus [Unknown]
  - Lip swelling [Unknown]
  - Hypersensitivity [Unknown]
